FAERS Safety Report 25402265 (Version 1)
Quarter: 2025Q2

REPORT INFORMATION
  Report Type: Spontaneous
  Country: US (occurrence: US)
  Receive Date: 20250605
  Receipt Date: 20250605
  Transmission Date: 20250716
  Serious: No
  Sender: SPRINGWORKS THERAPEUTIC
  Company Number: US-SPRINGWORKS THERAPEUTICS-SW-002695

PATIENT
  Sex: Male

DRUGS (2)
  1. OGSIVEO [Suspect]
     Active Substance: NIROGACESTAT HYDROBROMIDE
     Indication: Desmoid tumour
     Dates: start: 202410
  2. OGSIVEO [Suspect]
     Active Substance: NIROGACESTAT HYDROBROMIDE

REACTIONS (2)
  - Respiratory disorder [Recovered/Resolved]
  - Hypophosphataemia [Recovered/Resolved]
